FAERS Safety Report 11419788 (Version 2)
Quarter: 2015Q4

REPORT INFORMATION
  Report Type: Spontaneous
  Country: PE (occurrence: PE)
  Receive Date: 20150826
  Receipt Date: 20151014
  Transmission Date: 20160304
  Serious: Yes (Other)
  Sender: FDA-Public Use
  Company Number: PE-PFIZER INC-2015281938

PATIENT
  Sex: Male

DRUGS (1)
  1. ALDACTONE-A [Suspect]
     Active Substance: SPIRONOLACTONE
     Dosage: 25 MG, DAILY

REACTIONS (2)
  - Infarction [Unknown]
  - Angiopathy [Unknown]
